FAERS Safety Report 17097293 (Version 1)
Quarter: 2019Q4

REPORT INFORMATION
  Report Type: Spontaneous
  Country: US (occurrence: US)
  Receive Date: 20191202
  Receipt Date: 20191202
  Transmission Date: 20200122
  Serious: No
  Sender: FDA-Public Use
  Company Number: US-DRREDDYS-USA/USA/19/0116407

PATIENT
  Age: 73 Year
  Sex: Female

DRUGS (3)
  1. FENTANYL CITRATE. [Suspect]
     Active Substance: FENTANYL CITRATE
     Dosage: TWICE (50 MCG X 2).
     Route: 042
  2. MORPHINE [Suspect]
     Active Substance: MORPHINE
     Indication: SPINAL ANAESTHESIA
     Dosage: INJECTED TO THE INTRATHECAL SPACE AT L3-4.
     Route: 037
  3. FENTANYL CITRATE. [Suspect]
     Active Substance: FENTANYL CITRATE
     Indication: ANALGESIC THERAPY
     Dosage: ADMINISTERED AT THE BEGINNING OF THE CASE (100 MCGS) FOR ADDITIONAL ANALGESIA AND THEN TWICE (50 MCG
     Route: 042

REACTIONS (1)
  - Confusional state [Recovered/Resolved]
